FAERS Safety Report 10669346 (Version 1)
Quarter: 2014Q4

REPORT INFORMATION
  Report Type: Spontaneous
  Country: RS (occurrence: RS)
  Receive Date: 20141222
  Receipt Date: 20141222
  Transmission Date: 20150529
  Serious: Yes (Death, Other)
  Sender: FDA-Public Use
  Company Number: PHHY2014RS162463

PATIENT
  Age: 49 Year
  Sex: Male

DRUGS (2)
  1. CICLOSPORIN [Suspect]
     Active Substance: CYCLOSPORINE
     Indication: TRANSFUSION ASSOCIATED GRAFT VERSUS HOST DISEASE
     Route: 065
  2. MYCOPHENOLATE MOFETIL. [Suspect]
     Active Substance: MYCOPHENOLATE MOFETIL
     Indication: TRANSFUSION ASSOCIATED GRAFT VERSUS HOST DISEASE
     Route: 065

REACTIONS (10)
  - Pancytopenia [Unknown]
  - Hepatic failure [Unknown]
  - Condition aggravated [Fatal]
  - General physical health deterioration [Unknown]
  - Pseudomonas infection [Unknown]
  - Transfusion associated graft versus host disease [Fatal]
  - Staphylococcal infection [Unknown]
  - Cardiac failure [Unknown]
  - Cytomegalovirus infection [Unknown]
  - Product use issue [Unknown]
